FAERS Safety Report 10734152 (Version 1)
Quarter: 2015Q1

REPORT INFORMATION
  Report Type: Spontaneous
  Country: FR (occurrence: FR)
  Receive Date: 20150123
  Receipt Date: 20150123
  Transmission Date: 20150721
  Serious: Yes (Hospitalization)
  Sender: FDA-Public Use
  Company Number: FR-ASTRAZENECA-2015SE05339

PATIENT
  Age: 56 Year
  Sex: Female

DRUGS (5)
  1. TEMESTA [Concomitant]
     Active Substance: LORAZEPAM
  2. INEXIUM [Concomitant]
     Active Substance: ESOMEPRAZOLE
  3. TEGRETOL [Concomitant]
     Active Substance: CARBAMAZEPINE
  4. XEROQUEL [Suspect]
     Active Substance: QUETIAPINE FUMARATE
     Route: 048
     Dates: start: 20120503
  5. TERCIAN [Concomitant]
     Active Substance: CYAMEMAZINE
     Dosage: 100 MG 2.5 PER DAY

REACTIONS (5)
  - Peritonitis [Recovered/Resolved]
  - Gastrointestinal motility disorder [Unknown]
  - Septic shock [Recovered/Resolved]
  - Haemangioma of liver [Unknown]
  - Large intestine perforation [Recovered/Resolved with Sequelae]

NARRATIVE: CASE EVENT DATE: 20140828
